FAERS Safety Report 20825372 (Version 1)
Quarter: 2022Q2

REPORT INFORMATION
  Report Type: Spontaneous
  Country: US (occurrence: US)
  Receive Date: 20220513
  Receipt Date: 20220513
  Transmission Date: 20220721
  Serious: Yes (Other)
  Sender: FDA-Public Use
  Company Number: US-BOIRON-202200284

PATIENT
  Age: 9 Month
  Sex: Male

DRUGS (1)
  1. HOMEOPATHICS [Suspect]
     Active Substance: HOMEOPATHICS
     Indication: Product used for unknown indication
     Route: 048

REACTIONS (2)
  - Choking [Unknown]
  - Infantile spitting up [Unknown]
